FAERS Safety Report 6963575-4 (Version None)
Quarter: 2010Q3

REPORT INFORMATION
  Report Type: 
  Country: None (occurrence: None)
  Receive Date: 20100902
  Receipt Date: 20100816
  Transmission Date: 20110219
  Serious: Yes (Other)
  Sender: FDA-Public Use
  Company Number: US-BAYER-200937527NA

PATIENT
  Age: 62 Year
  Sex: Female
  Weight: 113 kg

DRUGS (15)
  1. MAGNEVIST [Suspect]
     Indication: NUCLEAR MAGNETIC RESONANCE IMAGING
     Dosage: ^2ML/KG^
     Dates: start: 20041112, end: 20041112
  2. AUGMENTIN '125' [Concomitant]
  3. LASIX [Concomitant]
  4. IMDUR [Concomitant]
  5. LISINOPRIL [Concomitant]
  6. NORVASC [Concomitant]
  7. BENADRYL [Concomitant]
  8. PERCOCET [Concomitant]
  9. ASPIRIN [Concomitant]
  10. UNASYN [Concomitant]
  11. KEFLEX [Concomitant]
  12. ISORDIL [Concomitant]
  13. COREG [Concomitant]
  14. ROLOIDS [Concomitant]
  15. ADVAIR DISKUS 100/50 [Concomitant]

REACTIONS (21)
  - ARTHRALGIA [None]
  - ARTHRITIS [None]
  - BACK PAIN [None]
  - BLISTER [None]
  - DRY SKIN [None]
  - ERYTHEMA [None]
  - JOINT CONTRACTURE [None]
  - MOBILITY DECREASED [None]
  - NEPHROGENIC SYSTEMIC FIBROSIS [None]
  - OEDEMA PERIPHERAL [None]
  - PAIN [None]
  - PAIN OF SKIN [None]
  - PRURITUS [None]
  - SKIN BURNING SENSATION [None]
  - SKIN DISCOLOURATION [None]
  - SKIN EXFOLIATION [None]
  - SKIN INDURATION [None]
  - SKIN LESION [None]
  - SKIN TIGHTNESS [None]
  - SKIN ULCER [None]
  - SKIN WARM [None]
